FAERS Safety Report 10013059 (Version 1)
Quarter: 2014Q1

REPORT INFORMATION
  Report Type: Spontaneous
  Country: US (occurrence: US)
  Receive Date: 20140314
  Receipt Date: 20140314
  Transmission Date: 20141002
  Serious: No
  Sender: FDA-Public Use
  Company Number: US-PFIZER INC-2014071893

PATIENT
  Age: 87 Year
  Sex: Female
  Weight: 72.56 kg

DRUGS (1)
  1. DICLOFENAC SODIUM\MISOPROSTOL [Suspect]
     Indication: ARTHRITIS
     Dosage: 200MCG/75MG, 2X/DAY
     Dates: end: 2014

REACTIONS (1)
  - Drug ineffective [Unknown]
